FAERS Safety Report 4355334-6 (Version None)
Quarter: 2004Q2

REPORT INFORMATION
  Report Type: 
  Country: None (occurrence: None)
  Receive Date: 20040504
  Receipt Date: 20031008
  Transmission Date: 20050107
  Serious: Yes (Other)
  Sender: FDA-Public Use
  Company Number: 200305952

PATIENT
  Age: 34 Year
  Sex: Female

DRUGS (1)
  1. VERMOX [Suspect]
     Dosage: PO
     Route: 048
     Dates: start: 20030901

REACTIONS (3)
  - DRUG EXPOSURE DURING PREGNANCY [None]
  - FOETAL GROWTH RETARDATION [None]
  - PREGNANCY [None]
